FAERS Safety Report 6834573-6 (Version None)
Quarter: 2010Q3

REPORT INFORMATION
  Report Type: 
  Country: None (occurrence: None)
  Receive Date: 20100712
  Receipt Date: 20070512
  Transmission Date: 20110219
  Serious: No
  Sender: FDA-Public Use
  Company Number: US-PFIZER INC-2007032775

PATIENT
  Sex: Male
  Weight: 113.4 kg

DRUGS (2)
  1. CHANTIX [Suspect]
     Indication: SMOKING CESSATION THERAPY
     Dates: start: 20070401
  2. VITAMIN B-12 [Concomitant]

REACTIONS (4)
  - ABNORMAL DREAMS [None]
  - EYE IRRITATION [None]
  - HEADACHE [None]
  - WEIGHT INCREASED [None]
